FAERS Safety Report 11281080 (Version 1)
Quarter: 2015Q3

REPORT INFORMATION
  Report Type: Spontaneous
  Country: US (occurrence: US)
  Receive Date: 20150717
  Receipt Date: 20150717
  Transmission Date: 20151125
  Serious: Yes (Congenital Anomaly, Other)
  Sender: FDA-Public Use
  Company Number: US-ABBVIE-15P-163-1425835-00

PATIENT
  Sex: Male

DRUGS (1)
  1. DEPAKOTE [Suspect]
     Active Substance: DIVALPROEX SODIUM
     Indication: MATERNAL EXPOSURE TIMING UNSPECIFIED
     Route: 064

REACTIONS (16)
  - Cognitive disorder [Unknown]
  - Autism [Unknown]
  - Antisocial behaviour [Unknown]
  - Language disorder [Unknown]
  - Emotional distress [Unknown]
  - Pain [Unknown]
  - Anhedonia [Unknown]
  - Economic problem [Unknown]
  - Mental disorder [Unknown]
  - Abnormal behaviour [Unknown]
  - Speech disorder [Unknown]
  - Attention deficit/hyperactivity disorder [Unknown]
  - Affect lability [Unknown]
  - Injury [Unknown]
  - Foetal exposure during pregnancy [Unknown]
  - Nervous system disorder [Unknown]
